FAERS Safety Report 8906414 (Version 1)
Quarter: 2012Q4

REPORT INFORMATION
  Report Type: Spontaneous
  Country: US (occurrence: None)
  Receive Date: 20121109
  Receipt Date: 20121109
  Transmission Date: 20130627
  Serious: Yes (Other)
  Sender: FDA-Public Use
  Company Number: None

PATIENT
  Sex: Male
  Weight: 92.99 kg

DRUGS (2)
  1. NEURONTIN [Suspect]
     Indication: ANXIETY
  2. GABAPENTIN [Suspect]

REACTIONS (17)
  - Dizziness [None]
  - Memory impairment [None]
  - Vision blurred [None]
  - Headache [None]
  - Coordination abnormal [None]
  - Cough [None]
  - Agitation [None]
  - Oropharyngeal pain [None]
  - Hypoacusis [None]
  - Cognitive disorder [None]
  - Insomnia [None]
  - Suicidal ideation [None]
  - Depression [None]
  - Dementia [None]
  - Speech disorder [None]
  - Fatigue [None]
  - Abdominal pain upper [None]
